FAERS Safety Report 4861547-7 (Version None)
Quarter: 2005Q4

REPORT INFORMATION
  Report Type: 
  Country: None (occurrence: None)
  Receive Date: 20051220
  Receipt Date: 20051209
  Transmission Date: 20060501
  Serious: Yes (Other)
  Sender: FDA-Public Use
  Company Number: CA-BRISTOL-MYERS SQUIBB COMPANY-13219944

PATIENT
  Age: 61 Year
  Sex: Female

DRUGS (10)
  1. TEQUIN [Suspect]
     Route: 048
  2. AMLODIPINE [Concomitant]
  3. ATACAND [Concomitant]
  4. CALCITRIOL [Concomitant]
  5. FERROUS GLUCONATE [Concomitant]
  6. FOLIC ACID [Concomitant]
  7. INSULIN [Concomitant]
  8. METOPROLOL [Concomitant]
  9. REPLAVITE [Concomitant]
  10. WARFARIN SODIUM [Concomitant]

REACTIONS (1)
  - HYPOGLYCAEMIA [None]
